FAERS Safety Report 11936142 (Version 1)
Quarter: 2016Q1

REPORT INFORMATION
  Report Type: Report from Study
  Country: US (occurrence: US)
  Receive Date: 20160121
  Receipt Date: 20160121
  Transmission Date: 20160526
  Serious: No
  Sender: FDA-Public Use
  Company Number: US-AMGEN-USASL2015137655

PATIENT
  Age: 61 Year
  Sex: Male

DRUGS (1)
  1. KYPROLIS [Suspect]
     Active Substance: CARFILZOMIB
     Indication: PLASMA CELL MYELOMA
     Dosage: EVERY MONDAY AND TUESDAY FOR 3 WEEKS, TAKES ONE WEEK OFF AND BEGINS AGAIN
     Route: 065
     Dates: start: 201511

REACTIONS (8)
  - Arthralgia [Unknown]
  - Chest discomfort [Unknown]
  - Myalgia [Unknown]
  - Swelling face [Unknown]
  - Sinusitis [Not Recovered/Not Resolved]
  - Nausea [Unknown]
  - Fatigue [Unknown]
  - Cough [Unknown]

NARRATIVE: CASE EVENT DATE: 2015
